FAERS Safety Report 6522331-1 (Version None)
Quarter: 2009Q4

REPORT INFORMATION
  Report Type: 
  Country: None (occurrence: None)
  Receive Date: 20091230
  Receipt Date: 20091224
  Transmission Date: 20100525
  Serious: Yes (Hospitalization)
  Sender: FDA-Public Use
  Company Number: B0620116A

PATIENT
  Age: 23 Year
  Sex: Female

DRUGS (5)
  1. LAMICTAL [Suspect]
     Indication: EPILEPSY
     Route: 048
     Dates: end: 20080724
  2. STILNOX [Suspect]
     Route: 048
  3. TERCIAN [Suspect]
     Dosage: 25MG TWICE PER DAY
     Route: 048
     Dates: end: 20080724
  4. TEMESTA [Suspect]
     Dosage: .5TAB THREE TIMES PER DAY
     Route: 048
     Dates: end: 20080724
  5. SERESTA [Concomitant]
     Route: 048

REACTIONS (10)
  - ABDOMINAL PAIN UPPER [None]
  - DRUG EXPOSURE DURING PREGNANCY [None]
  - HEADACHE [None]
  - HYPERREFLEXIA [None]
  - PHOSPHENES [None]
  - PLACENTAL INFARCTION [None]
  - PRE-ECLAMPSIA [None]
  - PREGNANCY INDUCED HYPERTENSION [None]
  - PROTEINURIA [None]
  - TINNITUS [None]
